FAERS Safety Report 6843775-4 (Version None)
Quarter: 2010Q3

REPORT INFORMATION
  Report Type: 
  Country: None (occurrence: None)
  Receive Date: 20100714
  Receipt Date: 20100714
  Transmission Date: 20110219
  Serious: Yes (Hospitalization)
  Sender: FDA-Public Use
  Company Number: None

PATIENT
  Age: 78 Year
  Sex: Male

DRUGS (4)
  1. DIGOXIN [Suspect]
     Indication: ATRIAL FIBRILLATION
     Dosage: 0.125 MG OTHER PO
     Route: 048
     Dates: start: 20100326, end: 20100611
  2. DIGOXIN [Suspect]
     Indication: CARDIAC FAILURE CONGESTIVE
     Dosage: 0.125 MG OTHER PO
     Route: 048
     Dates: start: 20100326, end: 20100611
  3. CARVEDILOL [Suspect]
     Indication: CARDIAC FAILURE CONGESTIVE
     Dosage: 6.25 MG BID PO
     Route: 048
     Dates: start: 20100326, end: 20100617
  4. CARVEDILOL [Suspect]
     Indication: HYPERTENSION
     Dosage: 6.25 MG BID PO
     Route: 048
     Dates: start: 20100326, end: 20100617

REACTIONS (4)
  - BRADYCARDIA [None]
  - DIZZINESS [None]
  - PRESYNCOPE [None]
  - RESPIRATORY DEPRESSION [None]
